FAERS Safety Report 6220480-9 (Version None)
Quarter: 2009Q2

REPORT INFORMATION
  Report Type: 
  Country: None (occurrence: None)
  Receive Date: 20090610
  Receipt Date: 20090604
  Transmission Date: 20091009
  Serious: Yes (Other)
  Sender: FDA-Public Use
  Company Number: US-JNJFOC-20090405829

PATIENT
  Sex: Female

DRUGS (3)
  1. TOPAMAX [Suspect]
     Indication: PAIN
     Dosage: 200 MG TOTAL
     Route: 048
  2. CYMBALTA [Concomitant]
     Indication: PAIN
     Route: 065
  3. MARIJUANA [Concomitant]
     Indication: SOMNOLENCE
     Route: 065

REACTIONS (20)
  - ANOREXIA [None]
  - CONFUSIONAL STATE [None]
  - CONVULSION [None]
  - DEPRESSION [None]
  - DIARRHOEA [None]
  - DISTURBANCE IN ATTENTION [None]
  - FALL [None]
  - FEELINGS OF WORTHLESSNESS [None]
  - HEADACHE [None]
  - INSOMNIA [None]
  - JOINT INJURY [None]
  - LOSS OF CONSCIOUSNESS [None]
  - MEMORY IMPAIRMENT [None]
  - NAUSEA [None]
  - PARAESTHESIA [None]
  - PHOTOPHOBIA [None]
  - SOCIAL PROBLEM [None]
  - SUICIDAL IDEATION [None]
  - TEMPERATURE INTOLERANCE [None]
  - WEIGHT DECREASED [None]
